FAERS Safety Report 5017973-9 (Version None)
Quarter: 2006Q2

REPORT INFORMATION
  Report Type: 
  Country: None (occurrence: None)
  Receive Date: 20060605
  Receipt Date: 20060526
  Transmission Date: 20061013
  Serious: Yes (Death, Other)
  Sender: FDA-Public Use
  Company Number: GB-ROSEMONTLT-UKRP0000094

PATIENT
  Age: 21 Year
  Sex: Male

DRUGS (1)
  1. LITHIUM CARBONATE [Suspect]
     Route: 048
     Dates: start: 19970101, end: 20030101

REACTIONS (1)
  - RENAL FAILURE CHRONIC [None]
